FAERS Safety Report 23309792 (Version 1)
Quarter: 2023Q4

REPORT INFORMATION
  Report Type: Spontaneous
  Country: US (occurrence: None)
  Receive Date: 20231215
  Receipt Date: 20231215
  Transmission Date: 20240110
  Serious: No
  Sender: FDA-Public Use
  Company Number: None

PATIENT

DRUGS (2)
  1. LISINOPRIL [Suspect]
     Active Substance: LISINOPRIL
  2. MIRAPEX [Suspect]
     Active Substance: PRAMIPEXOLE DIHYDROCHLORIDE

REACTIONS (9)
  - Product commingling [None]
  - Wrong product administered [None]
  - Dizziness [None]
  - Balance disorder [None]
  - Pulmonary pain [None]
  - Muscle spasms [None]
  - Sleep disorder [None]
  - Fatigue [None]
  - Drug interaction [None]

NARRATIVE: CASE EVENT DATE: 20231108
